FAERS Safety Report 9486038 (Version 1)
Quarter: 2013Q3

REPORT INFORMATION
  Report Type: Spontaneous
  Country: FR (occurrence: FR)
  Receive Date: 20130829
  Receipt Date: 20130829
  Transmission Date: 20140515
  Serious: Yes (Other)
  Sender: FDA-Public Use
  Company Number: FR-JNJFOC-20130813268

PATIENT
  Sex: 0

DRUGS (1)
  1. METHYLPHENIDATE [Suspect]
     Indication: PRODUCT USED FOR UNKNOWN INDICATION
     Dosage: DAILY DOSE OF 60MG FOR ADULT OLDER THAN 18YEARS.??(FROM 40 TO 2800MG PER DAY)(MEDIAN-400MG PER DAY)
     Route: 042

REACTIONS (14)
  - Intentional drug misuse [Unknown]
  - Drug diversion [Unknown]
  - Off label use [Unknown]
  - Incorrect route of drug administration [Unknown]
  - Weight decreased [Unknown]
  - Sleep disorder [Unknown]
  - Depression [Unknown]
  - Hallucination [Unknown]
  - Cardiovascular disorder [Unknown]
  - Subcutaneous abscess [Unknown]
  - HIV infection [Unknown]
  - Sepsis [Unknown]
  - Social avoidant behaviour [Unknown]
  - Hepatitis C [Unknown]
